FAERS Safety Report 12138261 (Version 1)
Quarter: 2016Q1

REPORT INFORMATION
  Report Type: Report from Study
  Country: US (occurrence: US)
  Receive Date: 20160302
  Receipt Date: 20160302
  Transmission Date: 20160526
  Serious: Yes (Other)
  Sender: FDA-Public Use
  Company Number: US-GILEAD-2016-0195814

PATIENT
  Age: 74 Year
  Sex: Female

DRUGS (1)
  1. AMBRISENTAN [Suspect]
     Active Substance: AMBRISENTAN
     Indication: PRODUCT USED FOR UNKNOWN INDICATION
     Dosage: 10 MG, QD
     Route: 065
     Dates: start: 20150306

REACTIONS (6)
  - Sinus disorder [Unknown]
  - Atrial fibrillation [Unknown]
  - Cough [Unknown]
  - Dizziness [Unknown]
  - Bronchitis [Unknown]
  - Oropharyngeal pain [Unknown]
